FAERS Safety Report 7335149-7 (Version None)
Quarter: 2011Q1

REPORT INFORMATION
  Report Type: 
  Country: None (occurrence: None)
  Receive Date: 20110307
  Receipt Date: 20110301
  Transmission Date: 20110831
  Serious: Yes (Life-Threatening, Hospitalization, Other)
  Sender: FDA-Public Use
  Company Number: JP-JNJFOC-20110201188

PATIENT
  Sex: Male
  Weight: 60 kg

DRUGS (15)
  1. RISPERDAL [Suspect]
     Indication: DELIRIUM
     Route: 048
  2. DEPAS [Concomitant]
     Route: 048
  3. SHAKUYAKU-K ANZO-TO [Concomitant]
     Route: 048
  4. NORVASC [Concomitant]
     Route: 048
  5. GRAMALIL [Concomitant]
     Route: 048
  6. SEROQUEL [Concomitant]
     Route: 048
  7. LAC-B [Concomitant]
     Route: 048
  8. HALCION [Concomitant]
     Route: 048
  9. POLYFUL [Concomitant]
     Route: 048
  10. SELBEX [Concomitant]
     Route: 048
  11. LENDORMIN [Concomitant]
     Route: 048
  12. BLOPRESS [Concomitant]
     Route: 048
  13. MAGMITT [Concomitant]
     Route: 048
  14. VOLTAREN [Concomitant]
     Route: 048
  15. ESTAZOLAM [Concomitant]
     Route: 048

REACTIONS (3)
  - DYSPHAGIA [None]
  - PSEUDOBULBAR PALSY [None]
  - PNEUMONIA ASPIRATION [None]
